FAERS Safety Report 21029481 (Version 1)
Quarter: 2022Q2

REPORT INFORMATION
  Report Type: Spontaneous
  Country: US (occurrence: US)
  Receive Date: 20220630
  Receipt Date: 20220630
  Transmission Date: 20220721
  Serious: Yes (Other)
  Sender: FDA-Public Use
  Company Number: US-TEVA-2022-US-2049726

PATIENT
  Age: 35 Month
  Sex: Female

DRUGS (2)
  1. PREDNISOLONE [Suspect]
     Active Substance: PREDNISOLONE
     Indication: Nephrotic syndrome
     Dosage: FOR A TOTAL OF 6 WEEKS
     Route: 048
     Dates: start: 201812
  2. TACROLIMUS [Suspect]
     Active Substance: TACROLIMUS
     Indication: Nephrotic syndrome
     Dosage: AFTER DOSE INCREASE DYSTONIC REACTION OCCURED
     Route: 065
     Dates: start: 20190820, end: 2020

REACTIONS (2)
  - Steroid dependence [Recovered/Resolved]
  - Dystonia [Recovered/Resolved]

NARRATIVE: CASE EVENT DATE: 20190416
